FAERS Safety Report 5960423-6 (Version None)
Quarter: 2008Q4

REPORT INFORMATION
  Report Type: 
  Country: None (occurrence: None)
  Receive Date: 20081112
  Receipt Date: 20080411
  Transmission Date: 20090506
  Serious: Yes (Other)
  Sender: FDA-Public Use
  Company Number: US-JNJFOC-20080404973

PATIENT
  Age: 39 Year
  Sex: Female
  Weight: 56.6996 kg

DRUGS (1)
  1. MOTRIN [Suspect]
     Indication: BACK PAIN
     Dates: start: 19980101

REACTIONS (2)
  - ABDOMINAL DISCOMFORT [None]
  - GASTROINTESTINAL DISORDER [None]
